FAERS Safety Report 7768849-5 (Version None)
Quarter: 2011Q3

REPORT INFORMATION
  Report Type: 
  Country: None (occurrence: None)
  Receive Date: 20110922
  Receipt Date: 20110318
  Transmission Date: 20111222
  Serious: No
  Sender: FDA-Public Use
  Company Number: US-ASTRAZENECA-2007UW05823

PATIENT
  Sex: Male
  Weight: 117.9 kg

DRUGS (5)
  1. SEROQUEL [Suspect]
     Indication: BIPOLAR DISORDER
     Route: 048
     Dates: start: 20030101
  2. SEROQUEL [Suspect]
     Indication: SCHIZOPHRENIA
     Route: 048
     Dates: start: 20030101
  3. ADDERALL 5 [Concomitant]
     Dosage: 30 MG  TWICE DAILY
     Dates: start: 20021201, end: 20050401
  4. METHADONE HCL [Concomitant]
     Indication: PAIN MANAGEMENT
     Dates: start: 20060601
  5. SEROQUEL [Suspect]
     Indication: DEPRESSION
     Route: 048
     Dates: start: 20030101

REACTIONS (3)
  - BACK PAIN [None]
  - HEPATITIS C [None]
  - TYPE 2 DIABETES MELLITUS [None]
